FAERS Safety Report 13127059 (Version 2)
Quarter: 2017Q1

REPORT INFORMATION
  Report Type: Spontaneous
  Country: PE (occurrence: PE)
  Receive Date: 20170118
  Receipt Date: 20170215
  Transmission Date: 20170428
  Serious: Yes (Other)
  Sender: FDA-Public Use
  Company Number: PE-PFIZER INC-2016507892

PATIENT
  Age: 82 Year
  Sex: Female

DRUGS (2)
  1. AMLODIPINE BESYLATE AND ATORVASTATIN CALCIUM [Suspect]
     Active Substance: AMLODIPINE BESYLATE\ATORVASTATIN CALCIUM
     Indication: BLOOD PRESSURE INCREASED
     Dosage: 1 DF (5/10 MG), DAILY
     Dates: start: 2015
  2. AMLODIPINE BESYLATE AND ATORVASTATIN CALCIUM [Suspect]
     Active Substance: AMLODIPINE BESYLATE\ATORVASTATIN CALCIUM
     Indication: BLOOD CHOLESTEROL INCREASED
     Dosage: 1 DF (5/10 MG), DAILY
     Dates: start: 2015

REACTIONS (4)
  - Cough [Recovered/Resolved]
  - Myocardial infarction [Recovered/Resolved]
  - Loss of consciousness [Recovered/Resolved]
  - Dyspnoea [Recovered/Resolved]

NARRATIVE: CASE EVENT DATE: 201608
